FAERS Safety Report 10612360 (Version 2)
Quarter: 2014Q4

REPORT INFORMATION
  Report Type: Not Available
  Country: US (occurrence: US)
  Receive Date: 20141127
  Receipt Date: 20141127
  Transmission Date: 20150529
  Serious: Yes (Other)
  Sender: FDA-Public Use
  Company Number: US-LUPIN PHARMACEUTICALS INC.-E2B_00001391

PATIENT
  Age: 8 Year
  Sex: Female
  Weight: 37.46 kg

DRUGS (14)
  1. AURALGAN 5.5%- 1.4% [Concomitant]
     Indication: PRODUCT USED FOR UNKNOWN INDICATION
     Dates: start: 20131011
  2. PROAIR HFA [Concomitant]
     Active Substance: ALBUTEROL SULFATE
     Indication: PRODUCT USED FOR UNKNOWN INDICATION
     Dosage: 2 PUFFS EVERY 4 HOURS AS NEEDED
     Dates: start: 20130514
  3. BERRIWELL [Concomitant]
     Indication: HYPERSENSITIVITY
  4. GUAIFENESIN (TUSSIN) [Concomitant]
     Indication: PRODUCTIVE COUGH
  5. MOMETASONE FUROATE (NASONEX) [Concomitant]
     Indication: HYPERSENSITIVITY
     Dosage: 1 SPRAY PER NOSTRIL
     Route: 045
  6. AURALGAN 5.5%- 1.4% [Concomitant]
  7. FLUTICASONE 50MCG [Concomitant]
     Indication: PRODUCT USED FOR UNKNOWN INDICATION
     Dosage: SPRAY TO SPRAY EVERY DAY IN EACH NOSTRIL
     Route: 045
     Dates: start: 20131008
  8. XOPENEX 0.63MG/3ML [Concomitant]
     Dosage: 1 VIAL VIA NEBULIZER EVERY 4 HOURS AS NEEDED
  9. FLUTICASONE 50MCG [Concomitant]
     Dosage: SPRAY TO SPRAY EVERY DAY IN EACH NOSTRIL
     Route: 045
  10. ZYRTEC 1MG/ML [Concomitant]
     Indication: HYPERSENSITIVITY
     Dosage: 1-2 TEASPOON (5MG)
     Route: 048
     Dates: start: 20120501
  11. PROAIR HFA [Concomitant]
     Active Substance: ALBUTEROL SULFATE
     Dosage: 2 PUFFS EVERY 4 HOURS AS NEEDED
  12. SUPRAX [Suspect]
     Active Substance: CEFIXIME
     Indication: OTITIS MEDIA
     Dates: start: 20131011, end: 20131018
  13. XOPENEX 0.63MG/3ML [Concomitant]
     Indication: PRODUCT USED FOR UNKNOWN INDICATION
     Dosage: 1 VIAL VIA NEBULIZER EVERY 4 HOURS AS NEEDED
     Dates: start: 20130514
  14. ZYRTEC 1MG/ML [Concomitant]
     Dosage: 1-2 TEASPOON (5MG)
     Route: 048

REACTIONS (11)
  - Rash erythematous [None]
  - Erythema [None]
  - Urticaria [Not Recovered/Not Resolved]
  - Ear swelling [Not Recovered/Not Resolved]
  - Arthritis [Not Recovered/Not Resolved]
  - Lip swelling [Not Recovered/Not Resolved]
  - Peripheral swelling [Not Recovered/Not Resolved]
  - Arthralgia [Not Recovered/Not Resolved]
  - Rash pruritic [None]
  - Joint swelling [None]
  - Rhinitis allergic [None]

NARRATIVE: CASE EVENT DATE: 20131018
